FAERS Safety Report 11227887 (Version 6)
Quarter: 2016Q3

REPORT INFORMATION
  Report Type: Spontaneous
  Country: US (occurrence: US)
  Receive Date: 20150630
  Receipt Date: 20160811
  Transmission Date: 20161109
  Serious: Yes (Hospitalization, Other)
  Sender: FDA-Public Use
  Company Number: US-GLAXOSMITHKLINE-US2015GSK089306

PATIENT
  Age: 64 Year
  Sex: Female

DRUGS (19)
  1. HYOSCYAMINE. [Concomitant]
     Active Substance: HYOSCYAMINE
  2. TAMSULOSIN [Concomitant]
     Active Substance: TAMSULOSIN
  3. CARVEDILOL. [Concomitant]
     Active Substance: CARVEDILOL
  4. ADVAIR DISKUS [Suspect]
     Active Substance: FLUTICASONE PROPIONATE\SALMETEROL XINAFOATE
     Indication: CHRONIC OBSTRUCTIVE PULMONARY DISEASE
     Dosage: 250/50 UG
     Dates: start: 201503
  5. VENTOLIN HFA [Suspect]
     Active Substance: ALBUTEROL SULFATE
     Dosage: 10 PUFFS PER DAY
     Dates: start: 201607
  6. LOVASTATIN. [Concomitant]
     Active Substance: LOVASTATIN
  7. VENTOLIN HFA [Suspect]
     Active Substance: ALBUTEROL SULFATE
     Indication: CHRONIC OBSTRUCTIVE PULMONARY DISEASE
     Dosage: UNK UNK, U
     Route: 065
     Dates: start: 201503
  8. ADVAIR HFA [Suspect]
     Active Substance: FLUTICASONE PROPIONATE\SALMETEROL XINAFOATE
     Indication: CHRONIC OBSTRUCTIVE PULMONARY DISEASE
     Dosage: UNK, U
     Route: 065
     Dates: start: 2015, end: 201606
  9. CYCLOBENZAPRINE [Concomitant]
     Active Substance: CYCLOBENZAPRINE
  10. LEVOTHYROXINE. [Concomitant]
     Active Substance: LEVOTHYROXINE
  11. ADVAIR HFA [Suspect]
     Active Substance: FLUTICASONE PROPIONATE\SALMETEROL XINAFOATE
     Indication: DYSPNOEA
  12. VENTOLIN HFA [Suspect]
     Active Substance: ALBUTEROL SULFATE
     Indication: DYSPNOEA
     Dosage: 2 PUFF(S), 1D
     Route: 055
     Dates: start: 2015
  13. ASA [Concomitant]
     Active Substance: ASPIRIN
  14. LISINOPRIL. [Concomitant]
     Active Substance: LISINOPRIL
  15. TRAMADOL. [Concomitant]
     Active Substance: TRAMADOL
  16. HYDROXYZINE [Concomitant]
     Active Substance: HYDROXYZINE\HYDROXYZINE HYDROCHLORIDE
  17. LATANOPROST. [Concomitant]
     Active Substance: LATANOPROST
     Dosage: EYE DROPS
  18. OXYBUTYNIN [Concomitant]
     Active Substance: OXYBUTYNIN
  19. TIOTROPIUM [Concomitant]
     Active Substance: TIOTROPIUM

REACTIONS (21)
  - Device issue [Unknown]
  - Blindness unilateral [Not Recovered/Not Resolved]
  - Dyspnoea [Recovering/Resolving]
  - Retinal detachment [Not Recovered/Not Resolved]
  - Fluid retention [Not Recovered/Not Resolved]
  - Extra dose administered [Recovering/Resolving]
  - Lung perforation [Unknown]
  - Infection [Not Recovered/Not Resolved]
  - Chronic obstructive pulmonary disease [Unknown]
  - Thermal burn [Not Recovered/Not Resolved]
  - Pain [Not Recovered/Not Resolved]
  - Hypertension [Recovered/Resolved]
  - Oxygen saturation decreased [Unknown]
  - Chest injury [Unknown]
  - Condition aggravated [Recovering/Resolving]
  - Headache [Recovered/Resolved]
  - Amnesia [Unknown]
  - Myocardial infarction [Unknown]
  - Emergency care [Unknown]
  - Joint swelling [Unknown]
  - Intentional product use issue [Recovering/Resolving]

NARRATIVE: CASE EVENT DATE: 2015
